FAERS Safety Report 19691215 (Version 6)
Quarter: 2021Q3

REPORT INFORMATION
  Report Type: Report from Study
  Country: US (occurrence: US)
  Receive Date: 20210812
  Receipt Date: 20210922
  Transmission Date: 20211014
  Serious: Yes (Hospitalization)
  Sender: FDA-Public Use
  Company Number: US-B.I. PHARMACEUTICALS,INC./RIDGEFIELD-2021-BI-119157

PATIENT
  Age: 67 Year
  Sex: Female

DRUGS (3)
  1. OFEV [Suspect]
     Active Substance: NINTEDANIB
     Indication: INTERSTITIAL LUNG DISEASE
     Dosage: 150MG TWICE DAILY
     Route: 048
     Dates: start: 20210716
  2. PREDNISONE. [Suspect]
     Active Substance: PREDNISONE
     Indication: PRODUCT USED FOR UNKNOWN INDICATION
     Route: 065
  3. OFEV [Suspect]
     Active Substance: NINTEDANIB
     Indication: IDIOPATHIC PULMONARY FIBROSIS

REACTIONS (10)
  - Peripheral swelling [Unknown]
  - Vomiting [Unknown]
  - Burning sensation [Recovering/Resolving]
  - Abdominal discomfort [Unknown]
  - Weight decreased [Unknown]
  - Urinary tract infection [Unknown]
  - Hypoaesthesia [Unknown]
  - Paraesthesia [Recovering/Resolving]
  - Diarrhoea [Not Recovered/Not Resolved]
  - Irritability [Unknown]

NARRATIVE: CASE EVENT DATE: 202108
